FAERS Safety Report 7309495-7 (Version None)
Quarter: 2011Q1

REPORT INFORMATION
  Report Type: 
  Country: None (occurrence: None)
  Receive Date: 20110223
  Receipt Date: 20110221
  Transmission Date: 20110831
  Serious: Yes (Hospitalization)
  Sender: FDA-Public Use
  Company Number: US-B.I. PHARMACEUTICALS,INC./RIDGEFIELD-2011-BP-01175BP

PATIENT
  Sex: Female

DRUGS (7)
  1. LISINOPRIL [Concomitant]
     Indication: HYPERTENSION
     Dosage: 5 MG
     Dates: start: 20101201
  2. PRILOSEC [Concomitant]
  3. ASPIRIN [Concomitant]
     Indication: MYOCARDIAL INFARCTION
     Dosage: 81 MG
     Dates: start: 20101201
  4. XANAX [Concomitant]
     Indication: NERVOUSNESS
     Dates: start: 20101201
  5. CARVEDILOL [Concomitant]
     Indication: MYOCARDIAL INFARCTION
     Dosage: 12.5 MG
     Dates: start: 20101201
  6. PRADAXA [Suspect]
     Indication: ANTICOAGULANT THERAPY
     Dosage: 300 MG
     Route: 048
     Dates: start: 20101228, end: 20110125
  7. DIGOXIN [Concomitant]
     Indication: MYOCARDIAL INFARCTION
     Dosage: 125 MG
     Dates: start: 20101201

REACTIONS (1)
  - CHEST PAIN [None]
